FAERS Safety Report 24154925 (Version 1)
Quarter: 2024Q3

REPORT INFORMATION
  Report Type: Report from Study
  Country: CO (occurrence: CO)
  Receive Date: 20240731
  Receipt Date: 20240731
  Transmission Date: 20241016
  Serious: Yes (Other)
  Sender: JOHNSON AND JOHNSON
  Company Number: CO-JNJFOC-20240773438

PATIENT
  Age: 5 Decade
  Sex: Female
  Weight: 65 kg

DRUGS (2)
  1. SIMPONI [Suspect]
     Active Substance: GOLIMUMAB
     Indication: Rheumatoid arthritis
     Dosage: LAST ADMINISTRATION 15/JUN/2024
     Route: 058
     Dates: start: 20180523
  2. DOLEX [PARACETAMOL] [Concomitant]

REACTIONS (10)
  - Aneurysm [Unknown]
  - Arteriovenous malformation [Unknown]
  - Viral infection [Unknown]
  - Malaise [Unknown]
  - Headache [Unknown]
  - Inflammation [Unknown]
  - Pain [Unknown]
  - Herpes virus infection [Unknown]
  - Immune system disorder [Unknown]
  - Dysphonia [Unknown]

NARRATIVE: CASE EVENT DATE: 20240701
